FAERS Safety Report 12553138 (Version 3)
Quarter: 2020Q3

REPORT INFORMATION
  Report Type: Report from Study
  Country: ZA (occurrence: ZA)
  Receive Date: 20160713
  Receipt Date: 20160928
  Transmission Date: 20201104
  Serious: Yes (Hospitalization)
  Sender: FDA-Public Use
  Company Number: ZA-JNJFOC-20160706503

PATIENT
  Age: 43 Year
  Sex: Female
  Weight: 61 kg

DRUGS (11)
  1. SMECTA [Concomitant]
     Active Substance: MONTMORILLONITE
     Indication: CROHN^S DISEASE
     Route: 048
     Dates: start: 20160219
  2. NORDETTE [Concomitant]
     Active Substance: ETHINYL ESTRADIOL\LEVONORGESTREL
     Indication: CONTRACEPTION
     Route: 048
     Dates: start: 20140517
  3. PAINAMOL [Concomitant]
     Indication: CROHN^S DISEASE
     Route: 048
     Dates: start: 20140805
  4. HYOSPASMOL [Concomitant]
     Indication: CROHN^S DISEASE
     Route: 048
     Dates: start: 20140303
  5. VENLAFAXINE [Concomitant]
     Active Substance: VENLAFAXINE HYDROCHLORIDE
     Indication: DEPRESSION
     Route: 048
  6. USTEKINUMAB [Suspect]
     Active Substance: USTEKINUMAB
     Indication: CROHN^S DISEASE
     Route: 058
     Dates: start: 20140714
  7. DEPRAMIL [Concomitant]
     Active Substance: CITALOPRAM HYDROBROMIDE
     Indication: DEPRESSION
     Route: 048
     Dates: start: 2012
  8. USTEKINUMAB [Suspect]
     Active Substance: USTEKINUMAB
     Route: 058
  9. TREPILINE [Concomitant]
     Active Substance: AMITRIPTYLINE
     Indication: DEPRESSION
     Route: 048
     Dates: start: 2014
  10. GASTRON [Concomitant]
     Active Substance: ALGINIC ACID\ALUMINUM HYDROXIDE\MAGNESIUM TRISILICATE\SODIUM BICARBONATE
     Indication: CROHN^S DISEASE
     Route: 048
     Dates: start: 20140303
  11. SALTERPYN [Concomitant]
     Indication: CROHN^S DISEASE
     Route: 048
     Dates: start: 20140303

REACTIONS (1)
  - Uterine leiomyoma [Recovered/Resolved]

NARRATIVE: CASE EVENT DATE: 20160525
